FAERS Safety Report 6030999-1 (Version None)
Quarter: 2009Q1

REPORT INFORMATION
  Report Type: 
  Country: None (occurrence: None)
  Receive Date: 20090106
  Receipt Date: 20090106
  Transmission Date: 20090719
  Serious: No
  Sender: FDA-Public Use
  Company Number: None

PATIENT
  Age: 52 Year
  Sex: Female
  Weight: 49.8957 kg

DRUGS (1)
  1. AVELOX [Suspect]
     Indication: BRONCHITIS
     Dosage: 400 MG 1 DAILY PO
     Route: 048

REACTIONS (3)
  - DISCOMFORT [None]
  - PALPITATIONS [None]
  - VENTRICULAR TACHYCARDIA [None]
